FAERS Safety Report 7176426-2 (Version None)
Quarter: 2010Q4

REPORT INFORMATION
  Report Type: 
  Country: None (occurrence: None)
  Receive Date: 20101220
  Receipt Date: 20101022
  Transmission Date: 20110411
  Serious: Yes (Other)
  Sender: FDA-Public Use
  Company Number: RO-RANBAXY-2010RR-39163

PATIENT
  Sex: Male
  Weight: 94 kg

DRUGS (6)
  1. RANOLIP [Suspect]
     Indication: HYPERTENSION
     Dosage: 20 MG, BID
     Route: 048
     Dates: start: 20070511, end: 20070514
  2. RANOLIP [Suspect]
     Indication: CORONARY ARTERY DISEASE
  3. RANOLIP [Suspect]
     Indication: DIABETES MELLITUS
  4. SIMVASTATIN [Concomitant]
     Indication: HYPERCHOLESTEROLAEMIA
     Dosage: 20 MG, UNK
     Route: 048
  5. INDAPAMIDE LPH 1 [Concomitant]
     Indication: HYPERTENSION
     Dosage: 5 MG, UNK
     Route: 048
  6. BETALOK-ZOK [Concomitant]
     Indication: HYPERTENSION
     Dosage: 50 MG, TID
     Route: 048

REACTIONS (2)
  - DIZZINESS [None]
  - PSORIASIS [None]
